FAERS Safety Report 19608244 (Version 1)
Quarter: 2021Q3

REPORT INFORMATION
  Report Type: Spontaneous
  Country: JP (occurrence: JP)
  Receive Date: 20210726
  Receipt Date: 20210726
  Transmission Date: 20211014
  Serious: Yes (Hospitalization)
  Sender: FDA-Public Use
  Company Number: NVSJ2021JP008797

PATIENT
  Age: 38 Year
  Sex: Female

DRUGS (1)
  1. ENERZAIR [Suspect]
     Active Substance: GLYCOPYRROLATE\INDACATEROL\MOMETASONE FUROATE
     Indication: COUGH VARIANT ASTHMA
     Dosage: 1 DF:INDACATEROL ACETATE 173 UG,GLYCOPYRRONIUM BROMIDE 63 UG, MOMETASONE FUROATE 160 UG
     Route: 055

REACTIONS (2)
  - Cough [Recovered/Resolved]
  - Nasopharyngitis [Recovered/Resolved]
